FAERS Safety Report 4633863-5 (Version None)
Quarter: 2005Q2

REPORT INFORMATION
  Report Type: 
  Country: None (occurrence: None)
  Receive Date: 20050412
  Receipt Date: 20050412
  Transmission Date: 20051028
  Serious: No
  Sender: FDA-Public Use
  Company Number: None

PATIENT
  Sex: Female
  Weight: 48.5 kg

DRUGS (4)
  1. TOPOTECAN [Suspect]
     Dates: start: 20050314, end: 20050316
  2. ETOPOSIDE [Suspect]
     Dates: start: 20050321, end: 20050323
  3. CISPLATIN [Suspect]
     Dates: start: 20050321, end: 20050323
  4. IRINOTECAN HCL [Suspect]

REACTIONS (5)
  - CARDIO-RESPIRATORY ARREST [None]
  - DYSPNOEA [None]
  - ECHOCARDIOGRAM ABNORMAL [None]
  - MEDIASTINAL MASS [None]
  - TACHYARRHYTHMIA [None]
